FAERS Safety Report 6806894-4 (Version None)
Quarter: 2010Q2

REPORT INFORMATION
  Report Type: 
  Country: None (occurrence: None)
  Receive Date: 20100629
  Receipt Date: 20080609
  Transmission Date: 20101027
  Serious: No
  Sender: FDA-Public Use
  Company Number: US-PFIZER INC-2008039526

PATIENT
  Sex: Female
  Weight: 83.91 kg

DRUGS (8)
  1. TIKOSYN [Suspect]
     Indication: ATRIAL FIBRILLATION
     Dates: start: 20080301
  2. WARFARIN SODIUM [Concomitant]
  3. LASIX [Concomitant]
  4. PRILOSEC [Concomitant]
  5. POTASSIUM [Concomitant]
  6. COREG [Concomitant]
  7. AMBIEN [Concomitant]
  8. ALTACE [Concomitant]

REACTIONS (2)
  - DRUG PRESCRIBING ERROR [None]
  - EPIGASTRIC DISCOMFORT [None]
